FAERS Safety Report 10831145 (Version 1)
Quarter: 2015Q1

REPORT INFORMATION
  Report Type: Report from Study
  Country: US (occurrence: US)
  Receive Date: 20150219
  Receipt Date: 20150219
  Transmission Date: 20150721
  Serious: No
  Sender: FDA-Public Use
  Company Number: US-ABBVIE-14P-163-1195391-00

PATIENT
  Age: 39 Year
  Sex: Female

DRUGS (4)
  1. CONTRACEPTIVES [Concomitant]
     Active Substance: UNSPECIFIED INGREDIENT
     Indication: MENSTRUAL CYCLE MANAGEMENT
  2. STEROID ANTIBACTERIALS [Suspect]
     Active Substance: UNSPECIFIED INGREDIENT
     Indication: PRODUCT USED FOR UNKNOWN INDICATION
     Dates: start: 2013
  3. HUMIRA [Suspect]
     Active Substance: ADALIMUMAB
     Indication: PSORIATIC ARTHROPATHY
     Dates: start: 200908
  4. PERCOCET [Concomitant]
     Active Substance: ACETAMINOPHEN\OXYCODONE HYDROCHLORIDE
     Indication: PAIN
     Dosage: UPTO 4 TABLETS A DAY

REACTIONS (18)
  - Pain [Not Recovered/Not Resolved]
  - Intervertebral disc degeneration [Unknown]
  - Hypersensitivity [Unknown]
  - Sinusitis [Unknown]
  - Menorrhagia [Not Recovered/Not Resolved]
  - Burning sensation [Unknown]
  - Drug effect incomplete [Unknown]
  - Injection site hypersensitivity [Not Recovered/Not Resolved]
  - Panic attack [Unknown]
  - Depression [Unknown]
  - Injection site bruising [Not Recovered/Not Resolved]
  - Hypertension [Unknown]
  - Menstruation irregular [Not Recovered/Not Resolved]
  - Intervertebral disc protrusion [Unknown]
  - Gastrooesophageal reflux disease [Unknown]
  - Injection site pain [Not Recovered/Not Resolved]
  - Anxiety [Unknown]
  - Nasal congestion [Unknown]

NARRATIVE: CASE EVENT DATE: 200908
